FAERS Safety Report 24137490 (Version 1)
Quarter: 2024Q3

REPORT INFORMATION
  Report Type: Spontaneous
  Country: US (occurrence: US)
  Receive Date: 20240725
  Receipt Date: 20240725
  Transmission Date: 20241017
  Serious: No
  Sender: SANDOZ
  Company Number: US-SANDOZ-SDZ2024US067641

PATIENT
  Sex: Female

DRUGS (2)
  1. ALBUTEROL SULFATE [Suspect]
     Active Substance: ALBUTEROL SULFATE
     Indication: Dyspnoea
     Dosage: TAKE ONE PUFF BEFORE HIKING AND THEN IF SHE GETS SHORTNESS OF BREATH DURING HIKING TO TAKE IT AGAIN
     Route: 055
  2. ALBUTEROL SULFATE [Suspect]
     Active Substance: ALBUTEROL SULFATE
     Dosage: TAKE ONE PUFF BEFORE HIKING AND THEN IF SHE GETS SHORTNESS OF BREATH DURING HIKING TO TAKE IT AGAIN
     Route: 055

REACTIONS (4)
  - Product dose omission issue [Unknown]
  - Device delivery system issue [Unknown]
  - Off label use [Unknown]
  - Device difficult to use [Unknown]
